FAERS Safety Report 9171626 (Version 1)
Quarter: 2013Q1

REPORT INFORMATION
  Report Type: Spontaneous
  Country: FR (occurrence: FR)
  Receive Date: 20130319
  Receipt Date: 20130319
  Transmission Date: 20140127
  Serious: Yes (Hospitalization, Disabling)
  Sender: FDA-Public Use
  Company Number: FR-VIIV HEALTHCARE LIMITED-B0873991A

PATIENT
  Age: 51 None
  Sex: Female

DRUGS (14)
  1. KIVEXA [Suspect]
     Indication: HIV INFECTION
     Dosage: 1TAB PER DAY
     Route: 048
     Dates: start: 20080708, end: 20120710
  2. ISENTRESS [Suspect]
     Indication: HIV INFECTION
     Dosage: 400MG TWICE PER DAY
     Route: 048
     Dates: start: 20120503, end: 20120710
  3. PREZISTA [Suspect]
     Indication: HIV INFECTION
     Dosage: 400MG TWICE PER DAY
     Route: 048
     Dates: start: 20100916, end: 20120503
  4. NORVIR [Suspect]
     Indication: HIV INFECTION
     Dosage: 100MG PER DAY
     Route: 048
     Dates: start: 20070712, end: 20120503
  5. METHADONE [Concomitant]
     Indication: DRUG DETOXIFICATION
     Route: 065
  6. HYDROCORTISONE [Concomitant]
     Indication: ADRENAL INSUFFICIENCY
     Dosage: 10MG THREE TIMES PER DAY
     Route: 065
  7. AVLOCARDYL [Concomitant]
     Indication: PORTAL HYPERTENSION
     Dosage: .5TAB FOUR TIMES PER DAY
     Route: 048
  8. INEXIUM [Concomitant]
     Dosage: 20MG PER DAY
     Route: 048
  9. STILNOX [Concomitant]
     Dosage: 10MG PER DAY
     Route: 048
  10. CACIT D3 [Concomitant]
     Dosage: 1TAB TWICE PER DAY
     Route: 048
  11. SEREVENT [Concomitant]
     Dosage: 25MG TWICE PER DAY
     Route: 055
  12. SPIRIVA [Concomitant]
     Dosage: 1UNIT PER DAY
     Route: 065
  13. TOPALGIC ( FRANCE ) [Concomitant]
     Dosage: 150MG TWICE PER DAY
     Route: 065
     Dates: start: 20100906
  14. CODEINE [Concomitant]

REACTIONS (5)
  - Neuropathy peripheral [Unknown]
  - Pain in extremity [Unknown]
  - Sensory disturbance [Unknown]
  - Hypoaesthesia [Unknown]
  - Areflexia [Unknown]
